FAERS Safety Report 13944330 (Version 1)
Quarter: 2017Q3

REPORT INFORMATION
  Report Type: Spontaneous
  Country: US (occurrence: US)
  Receive Date: 20170907
  Receipt Date: 20170907
  Transmission Date: 20171128
  Serious: Yes (Other)
  Sender: FDA-Public Use
  Company Number: US-ROCHE-1304230

PATIENT
  Age: 70 Year
  Sex: Male

DRUGS (2)
  1. RITUXAN [Suspect]
     Active Substance: RITUXIMAB
     Indication: CHRONIC LYMPHOCYTIC LEUKAEMIA
     Dosage: TRIED 1.5-2 YEARS AGO, NVEVER RECHALLENGED
     Route: 065
  2. ARZERRA [Concomitant]
     Active Substance: OFATUMUMAB

REACTIONS (2)
  - Anaphylactic reaction [Recovered/Resolved]
  - Drug intolerance [Unknown]
